FAERS Safety Report 6335150-6 (Version None)
Quarter: 2009Q3

REPORT INFORMATION
  Report Type: 
  Country: None (occurrence: None)
  Receive Date: 20090831
  Receipt Date: 20090831
  Transmission Date: 20100115
  Serious: Yes (Hospitalization)
  Sender: FDA-Public Use
  Company Number: None

PATIENT
  Age: 66 Year
  Sex: Female
  Weight: 58.9676 kg

DRUGS (1)
  1. EQUATE EXTRA STRENGTH PAIN RELIEVER [Suspect]
     Dosage: 2 TABLETS

REACTIONS (3)
  - ACCIDENTAL EXPOSURE [None]
  - HYPOTENSION [None]
  - PRODUCT COMMINGLING [None]
